FAERS Safety Report 15616963 (Version 1)
Quarter: 2018Q4

REPORT INFORMATION
  Report Type: Spontaneous
  Country: CL (occurrence: CL)
  Receive Date: 20181114
  Receipt Date: 20181114
  Transmission Date: 20190205
  Serious: Yes (Other)
  Sender: FDA-Public Use
  Company Number: CL-NOVOPROD-631867

PATIENT
  Age: 44 Year
  Sex: Female

DRUGS (2)
  1. GLAFORNIL [Concomitant]
     Indication: INSULIN RESISTANCE
     Dosage: UNK
  2. SAXENDA [Suspect]
     Active Substance: LIRAGLUTIDE
     Indication: PRODUCT USED FOR UNKNOWN INDICATION
     Dosage: 1.2 MG, QD
     Route: 058
     Dates: start: 20181023, end: 20181106

REACTIONS (1)
  - Facial paralysis [Unknown]
